FAERS Safety Report 14072244 (Version 2)
Quarter: 2020Q2

REPORT INFORMATION
  Report Type: Spontaneous
  Country: US (occurrence: US)
  Receive Date: 20171010
  Receipt Date: 20200420
  Transmission Date: 20200713
  Serious: No
  Sender: FDA-Public Use
  Company Number: US-SA-2017SA176564

PATIENT
  Age: 78 Year
  Sex: Male

DRUGS (2)
  1. ELIQUIS [Concomitant]
     Active Substance: APIXABAN
  2. DUPIXENT [Suspect]
     Active Substance: DUPILUMAB
     Indication: DERMATITIS ATOPIC
     Dosage: 150 MG/ML, QOW
     Route: 058
     Dates: start: 20190723

REACTIONS (3)
  - Musculoskeletal discomfort [Unknown]
  - Lacrimation increased [Unknown]
  - Eye disorder [Unknown]

NARRATIVE: CASE EVENT DATE: 20200410
